FAERS Safety Report 9826906 (Version 1)
Quarter: 2013Q4

REPORT INFORMATION
  Report Type: Spontaneous
  Country: US (occurrence: None)
  Receive Date: 20131112
  Receipt Date: 20131112
  Transmission Date: 20140711
  Serious: Yes (Hospitalization, Other)
  Sender: FDA-Public Use
  Company Number: E2B_00001006

PATIENT
  Age: 55 Year
  Sex: Female
  Weight: 90.27 kg

DRUGS (3)
  1. LISINOPRIL [Suspect]
     Indication: HYPERTENSION
     Dosage: 20 MG (20 MG, DAILY), PER ORAL
     Route: 048
     Dates: end: 201305
  2. METFORMIN (UNKNOWN) [Concomitant]
  3. AMLODIPINE (UNKNOWN) [Concomitant]

REACTIONS (8)
  - Throat tightness [None]
  - Angioedema [None]
  - Nasal congestion [None]
  - Swollen tongue [None]
  - Laryngeal oedema [None]
  - Cough [None]
  - Urticaria [None]
  - Pruritus [None]
